FAERS Safety Report 25086240 (Version 1)
Quarter: 2025Q1

REPORT INFORMATION
  Report Type: Spontaneous
  Country: US (occurrence: US)
  Receive Date: 20250317
  Receipt Date: 20250317
  Transmission Date: 20250409
  Serious: Yes (Other)
  Sender: PFIZER
  Company Number: US-002147023-NVSC2020US233842

PATIENT
  Age: 77 Year
  Sex: Male

DRUGS (2)
  1. VYNDAQEL [Interacting]
     Active Substance: TAFAMIDIS MEGLUMINE
     Indication: Cardiac amyloidosis
     Route: 065
  2. IMATINIB [Interacting]
     Active Substance: IMATINIB
     Indication: Chronic myeloid leukaemia
     Route: 065

REACTIONS (3)
  - Acquired ATTR amyloidosis [Unknown]
  - Cardiac amyloidosis [Unknown]
  - Drug interaction [Unknown]
